FAERS Safety Report 5587603-6 (Version None)
Quarter: 2008Q1

REPORT INFORMATION
  Report Type: 
  Country: None (occurrence: None)
  Receive Date: 20080110
  Receipt Date: 20080107
  Transmission Date: 20080703
  Serious: Yes (Hospitalization)
  Sender: FDA-Public Use
  Company Number: US-MERCK-0801USA00942

PATIENT
  Age: 71 Year
  Sex: Female

DRUGS (7)
  1. FOSAMAX [Suspect]
     Indication: OSTEOPOROSIS
     Route: 048
     Dates: start: 19950101, end: 20071101
  2. CALCIUM (UNSPECIFIED) [Concomitant]
     Route: 065
  3. VITAMINS (UNSPECIFIED) [Concomitant]
     Route: 065
  4. FOLIC ACID [Concomitant]
     Route: 065
  5. OMEGA-3 MARINE TRIGLYCERIDES [Concomitant]
     Route: 065
  6. ASPIRIN [Concomitant]
     Route: 065
  7. ZEBETA [Concomitant]
     Route: 065

REACTIONS (7)
  - ACETABULUM FRACTURE [None]
  - FALL [None]
  - FRACTURED ISCHIUM [None]
  - LUMBAR SPINAL STENOSIS [None]
  - PELVIC FRACTURE [None]
  - SPINAL COLUMN STENOSIS [None]
  - THERAPEUTIC RESPONSE DECREASED [None]
